FAERS Safety Report 5852426-7 (Version None)
Quarter: 2008Q3

REPORT INFORMATION
  Report Type: 
  Country: None (occurrence: None)
  Receive Date: 20080821
  Receipt Date: 20080819
  Transmission Date: 20090109
  Serious: Yes (Hospitalization)
  Sender: FDA-Public Use
  Company Number: PHHO2005US08561

PATIENT
  Sex: Female
  Weight: 95.5 kg

DRUGS (4)
  1. CIBADREX T29368+ [Suspect]
     Indication: HYPERTENSION
     Dosage: 20/12.5MG - LEVEL 1
     Route: 048
     Dates: start: 20050301, end: 20050329
  2. CIBADREX T29368+ [Suspect]
     Dosage: 40/12.5MG - LEVEL 2
     Route: 048
     Dates: start: 20050330, end: 20050425
  3. CIBADREX T29368+ [Suspect]
     Dosage: 40/25MG - LEVEL 3
     Route: 048
     Dates: start: 20050426
  4. ALEVE [Concomitant]
     Indication: ARTHRITIS
     Dosage: 220 MG, BID
     Route: 048
     Dates: start: 20030101

REACTIONS (3)
  - DIZZINESS [None]
  - ORTHOSTATIC HYPOTENSION [None]
  - SYNCOPE [None]
